FAERS Safety Report 5972054-2 (Version None)
Quarter: 2008Q4

REPORT INFORMATION
  Report Type: 
  Country: None (occurrence: None)
  Receive Date: 20081201
  Receipt Date: 20080229
  Transmission Date: 20090506
  Serious: No
  Sender: FDA-Public Use
  Company Number: US-TEVA-168681USA

PATIENT
  Sex: Female
  Weight: 64.922 kg

DRUGS (2)
  1. SALBUTAMOL SULFATE INHALATION, 0.09 MG [Suspect]
     Dosage: 2 PUFFS - ONCE
     Route: 055
     Dates: start: 20080228, end: 20080228
  2. AZITHROMYCIN [Concomitant]

REACTIONS (1)
  - THROAT IRRITATION [None]
